FAERS Safety Report 10234570 (Version 2)
Quarter: 2014Q2

REPORT INFORMATION
  Report Type: Spontaneous
  Country: US (occurrence: US)
  Receive Date: 20140613
  Receipt Date: 20140613
  Transmission Date: 20141212
  Serious: No
  Sender: FDA-Public Use
  Company Number: US-TEVA-474143USA

PATIENT
  Sex: Male

DRUGS (4)
  1. TEMOZOLOMIDE [Suspect]
  2. ZOFRAN [Concomitant]
  3. ATIVAN [Concomitant]
  4. DECADRON [Concomitant]
     Dates: start: 20140122

REACTIONS (4)
  - Abdominal discomfort [Unknown]
  - Nausea [Recovered/Resolved]
  - Vomiting [Recovered/Resolved]
  - Underdose [Unknown]
